FAERS Safety Report 8581920-3 (Version None)
Quarter: 2012Q3

REPORT INFORMATION
  Report Type: 
  Country: None (occurrence: None)
  Receive Date: 20120801
  Receipt Date: 20120801
  Transmission Date: 20120928
  Serious: Yes (Hospitalization)
  Sender: FDA-Public Use
  Company Number: None

PATIENT
  Age: 44 Year
  Sex: Female
  Weight: 88.905 kg

DRUGS (2)
  1. XELODA [Suspect]
  2. XELODA [Suspect]
     Indication: BREAST CANCER
     Dosage: 1000 MG BID PO
     Route: 048
     Dates: start: 20120621

REACTIONS (1)
  - PULMONARY EMBOLISM [None]
